FAERS Safety Report 19082717 (Version 1)
Quarter: 2021Q2

REPORT INFORMATION
  Report Type: Spontaneous
  Country: US (occurrence: US)
  Receive Date: 20210401
  Receipt Date: 20210401
  Transmission Date: 20210717
  Serious: Yes (Hospitalization)
  Sender: FDA-Public Use
  Company Number: None

PATIENT
  Age: 49 Year
  Weight: 93.1 kg

DRUGS (1)
  1. DULOXETINE HYDROCHLORIDE. [Suspect]
     Active Substance: DULOXETINE HYDROCHLORIDE
     Dates: end: 20210316

REACTIONS (8)
  - Nasal discomfort [None]
  - Pyrexia [None]
  - Erythema [None]
  - Headache [None]
  - Clostridium test positive [None]
  - Lip oedema [None]
  - Diarrhoea [None]
  - Swelling face [None]

NARRATIVE: CASE EVENT DATE: 20210325
